FAERS Safety Report 5138041-1 (Version None)
Quarter: 2006Q4

REPORT INFORMATION
  Report Type: 
  Country: None (occurrence: None)
  Receive Date: 20061030
  Receipt Date: 20060406
  Transmission Date: 20070319
  Serious: No
  Sender: FDA-Public Use
  Company Number: US-GLAXOSMITHKLINE-A0600746A

PATIENT
  Age: 81 Year
  Sex: Female

DRUGS (2)
  1. ADVAIR HFA [Suspect]
     Indication: COUGH
     Dosage: 1PUFF TWICE PER DAY
     Route: 055
     Dates: start: 20060404, end: 20060406
  2. MAXZIDE [Concomitant]

REACTIONS (3)
  - COUGH [None]
  - HEART RATE INCREASED [None]
  - INSOMNIA [None]
